FAERS Safety Report 18739404 (Version 4)
Quarter: 2021Q1

REPORT INFORMATION
  Report Type: Report from Study
  Country: GB (occurrence: GB)
  Receive Date: 20210114
  Receipt Date: 20210327
  Transmission Date: 20210419
  Serious: Yes (Other)
  Sender: FDA-Public Use
  Company Number: NVSC2020GB202613

PATIENT
  Sex: Female

DRUGS (2)
  1. HYRIMOZ [Suspect]
     Active Substance: ADALIMUMAB-ADAZ
     Indication: PSORIATIC ARTHROPATHY
     Dosage: 1 DF (EOW) (FORTNIGHTLY)
     Route: 065
  2. HYRIMOZ [Suspect]
     Active Substance: ADALIMUMAB-ADAZ
     Indication: ANKYLOSING SPONDYLITIS

REACTIONS (16)
  - Skin plaque [Unknown]
  - Tendon disorder [Unknown]
  - Psoriatic arthropathy [Unknown]
  - Weight increased [Unknown]
  - Stress [Unknown]
  - Fatigue [Unknown]
  - Pain in extremity [Unknown]
  - Movement disorder [Unknown]
  - Chest injury [Recovering/Resolving]
  - Arthralgia [Unknown]
  - Anxiety [Unknown]
  - Fall [Recovering/Resolving]
  - Contusion [Recovered/Resolved]
  - Depressed mood [Unknown]
  - Insomnia [Unknown]
  - Sacroiliitis [Unknown]
